FAERS Safety Report 7417517-8 (Version None)
Quarter: 2011Q2

REPORT INFORMATION
  Report Type: 
  Country: None (occurrence: None)
  Receive Date: 20110415
  Receipt Date: 20110210
  Transmission Date: 20111010
  Serious: Yes (Other)
  Sender: FDA-Public Use
  Company Number: GB-BAYER-2011-018663

PATIENT
  Age: 50 Year
  Sex: Male
  Weight: 123 kg

DRUGS (2)
  1. SORAFENIB (RAF KINASE INHIBITOR) [Suspect]
     Dosage: 400 MG, QOD
     Dates: start: 20100819
  2. AMLODIPINE [Suspect]
     Dosage: DAILY DOSE 5 MG
     Route: 048
     Dates: start: 20100930

REACTIONS (1)
  - PULMONARY EMBOLISM [None]
